FAERS Safety Report 9938548 (Version 2)
Quarter: 2014Q2

REPORT INFORMATION
  Report Type: Spontaneous
  Country: JP (occurrence: JP)
  Receive Date: 20140303
  Receipt Date: 20140430
  Transmission Date: 20141212
  Serious: Yes (Hospitalization)
  Sender: FDA-Public Use
  Company Number: US-ASTRAZENECA-2014SE14607

PATIENT
  Age: 83 Year
  Sex: Female

DRUGS (5)
  1. BLOPRESS [Suspect]
     Indication: HYPERTENSION
     Route: 048
     Dates: end: 2014
  2. BLOPRESS [Suspect]
     Indication: HYPERTENSION
     Route: 048
     Dates: start: 2014, end: 20140224
  3. NORVASC [Concomitant]
     Route: 048
  4. PLAVIX [Concomitant]
     Route: 048
  5. BAYASPIRIN [Concomitant]
     Route: 048

REACTIONS (1)
  - Atrioventricular block [Unknown]
